FAERS Safety Report 5444229-2 (Version None)
Quarter: 2007Q3

REPORT INFORMATION
  Report Type: 
  Country: None (occurrence: None)
  Receive Date: 20070904
  Receipt Date: 20070904
  Transmission Date: 20080115
  Serious: Yes (Other)
  Sender: FDA-Public Use
  Company Number: None

PATIENT
  Age: 51 Year
  Sex: Female
  Weight: 127.1 kg

DRUGS (13)
  1. VANCOMYCIN [Suspect]
     Indication: HERPES SIMPLEX
     Dosage: 1 GRAM IV
     Route: 042
     Dates: start: 20070601, end: 20070605
  2. VANCOMYCIN [Suspect]
     Indication: IMPETIGO
     Dosage: 1 GRAM IV
     Route: 042
     Dates: start: 20070601, end: 20070605
  3. VALACYCLOVIR [Suspect]
     Indication: HERPES ZOSTER
     Dosage: 1 GRAM PO
     Route: 048
     Dates: start: 20070601, end: 20070605
  4. WARFARIN SODIUM [Concomitant]
  5. ADVAIR DISKUS 100/50 [Concomitant]
  6. NICOTINE [Concomitant]
  7. CLONAZEPAM [Concomitant]
  8. CLONIDINE [Concomitant]
  9. GABAPENTIN [Concomitant]
  10. MORPHINE [Concomitant]
  11. MOXIFLOXACIN HCL [Concomitant]
  12. LISINOPRIL [Concomitant]
  13. PANTOPRAZOLE SODIUM [Concomitant]

REACTIONS (1)
  - BLOOD CREATININE INCREASED [None]
